FAERS Safety Report 7612232-X (Version None)
Quarter: 2011Q3

REPORT INFORMATION
  Report Type: 
  Country: None (occurrence: None)
  Receive Date: 20110715
  Receipt Date: 20110702
  Transmission Date: 20111222
  Serious: Yes (Other)
  Sender: FDA-Public Use
  Company Number: PHHY2010MX57301

PATIENT
  Age: 65 Year
  Sex: Female

DRUGS (3)
  1. RASILEZ [Suspect]
     Indication: HYPERTENSION
     Dosage: 150 MG, UNK
     Dates: start: 20090101, end: 20100901
  2. RASILEZ [Suspect]
     Dosage: 300 MG, UNK
     Dates: start: 20100807
  3. METOPROLOL TARTRATE [Concomitant]

REACTIONS (6)
  - RENAL FAILURE [None]
  - INFARCTION [None]
  - DYSPNOEA [None]
  - RESPIRATORY ARREST [None]
  - HYPERTENSION [None]
  - PULMONARY OEDEMA [None]
